FAERS Safety Report 14413975 (Version 1)
Quarter: 2018Q1

REPORT INFORMATION
  Report Type: Spontaneous
  Country: US (occurrence: US)
  Receive Date: 20180118
  Receipt Date: 20180118
  Transmission Date: 20180509
  Serious: No
  Sender: FDA-Public Use
  Company Number: None

PATIENT
  Sex: Female

DRUGS (1)
  1. TALTZ [Suspect]
     Active Substance: IXEKIZUMAB
     Indication: PSORIASIS
     Dosage: 80MG/ML AT WEEK 12 THEN EVERY 4 WEEKS THEREAFTER SUBCUTANEOUSLY
     Route: 058
     Dates: start: 20171129

REACTIONS (2)
  - Injection site rash [None]
  - Drug hypersensitivity [None]
